FAERS Safety Report 5140038-2 (Version None)
Quarter: 2006Q4

REPORT INFORMATION
  Report Type: 
  Country: None (occurrence: None)
  Receive Date: 20061031
  Receipt Date: 20061027
  Transmission Date: 20070319
  Serious: Yes (Other)
  Sender: FDA-Public Use
  Company Number: JP-BAYER-200615061GDS

PATIENT
  Age: 72 Year
  Sex: Male

DRUGS (6)
  1. CIPROFLOXACIN HCL [Suspect]
     Indication: DRUG USE FOR UNKNOWN INDICATION
     Route: 065
  2. LEVOFLOXACIN [Suspect]
     Indication: DRUG USE FOR UNKNOWN INDICATION
     Route: 065
  3. CEFTAZIDIME [Suspect]
     Indication: DRUG USE FOR UNKNOWN INDICATION
     Route: 065
  4. FINIBAX [Concomitant]
     Indication: DRUG USE FOR UNKNOWN INDICATION
     Route: 065
  5. VIFEND [Concomitant]
     Indication: DRUG USE FOR UNKNOWN INDICATION
     Route: 065
  6. UNKNOWN DRUG [Concomitant]
     Indication: ANTICOAGULANT THERAPY
     Route: 065

REACTIONS (1)
  - INTERSTITIAL LUNG DISEASE [None]
